FAERS Safety Report 5107052-4 (Version None)
Quarter: 2006Q3

REPORT INFORMATION
  Report Type: 
  Country: None (occurrence: None)
  Receive Date: 20060913
  Receipt Date: 20060821
  Transmission Date: 20061208
  Serious: Yes (Other)
  Sender: FDA-Public Use
  Company Number: GXKR2006NL05551

PATIENT
  Age: 40 Year
  Sex: Female

DRUGS (2)
  1. TRAMADOL HYDROCHLORIDE [Suspect]
     Dosage: 100 MG, QD, ORAL
     Route: 048
     Dates: start: 20060730
  2. MICROGYNON            (ETHINYLESTRADIOL, LEVONOGRESTREL) [Concomitant]

REACTIONS (4)
  - HOT FLUSH [None]
  - HYPERVENTILATION [None]
  - SYNCOPE [None]
  - VOMITING [None]
